FAERS Safety Report 8497031-1 (Version None)
Quarter: 2012Q3

REPORT INFORMATION
  Report Type: 
  Country: None (occurrence: None)
  Receive Date: 20120709
  Receipt Date: 20120604
  Transmission Date: 20120928
  Serious: No
  Sender: FDA-Public Use
  Company Number: US-AMGEN-USASP2012034817

PATIENT
  Age: 59 Year
  Sex: Female

DRUGS (1)
  1. ENBREL [Suspect]
     Indication: RHEUMATOID ARTHRITIS
     Dosage: 50 MG, QWK
     Dates: start: 20090826

REACTIONS (5)
  - HYPOAESTHESIA [None]
  - LIBIDO DECREASED [None]
  - PARAESTHESIA [None]
  - PAIN IN EXTREMITY [None]
  - LIMB DISCOMFORT [None]
